FAERS Safety Report 13174339 (Version 2)
Quarter: 2017Q2

REPORT INFORMATION
  Report Type: Spontaneous
  Country: NO (occurrence: NO)
  Receive Date: 20170201
  Receipt Date: 20170510
  Transmission Date: 20170830
  Serious: Yes (Other)
  Sender: FDA-Public Use
  Company Number: NO-PFIZER INC-2017043226

PATIENT
  Age: 8 Week
  Sex: Female
  Weight: 4.74 kg

DRUGS (2)
  1. DOXEPIN HCL [Suspect]
     Active Substance: DOXEPIN HYDROCHLORIDE
     Dosage: 25 MG, 3X/DAY
     Route: 063
  2. DOXEPIN HCL [Suspect]
     Active Substance: DOXEPIN HYDROCHLORIDE
     Indication: ASTHENIA
     Dosage: 10 MG, DAILY
     Route: 063

REACTIONS (5)
  - Sedation [Unknown]
  - Respiratory depression [Unknown]
  - Somnolence [Unknown]
  - Exposure during breast feeding [Unknown]
  - Respiratory arrest [Unknown]
